FAERS Safety Report 13870131 (Version 1)
Quarter: 2017Q3

REPORT INFORMATION
  Report Type: Report from Study
  Country: US (occurrence: US)
  Receive Date: 20170815
  Receipt Date: 20170815
  Transmission Date: 20171127
  Serious: No
  Sender: FDA-Public Use
  Company Number: US-TARO-2017TAR00107

PATIENT
  Age: 58 Year
  Sex: Female
  Weight: 90.7 kg

DRUGS (4)
  1. UNSPECIFIED ACID REFLUX MEDICATION [Concomitant]
  2. SIMVASTATIN. [Concomitant]
     Active Substance: SIMVASTATIN
  3. DESONIDE CREAM USP 0.05% [Suspect]
     Active Substance: DESONIDE
     Indication: HYPERSENSITIVITY
     Dosage: UNK UNK, 2X/DAY
     Route: 061
     Dates: start: 20170203
  4. TYLENOL [Concomitant]
     Active Substance: ACETAMINOPHEN
     Dosage: UNK

REACTIONS (4)
  - Accidental exposure to product [Recovered/Resolved]
  - Application site pain [Recovered/Resolved]
  - Nasopharyngitis [Unknown]
  - Application site hypersensitivity [Recovered/Resolved]

NARRATIVE: CASE EVENT DATE: 20170210
